FAERS Safety Report 5153847-0 (Version None)
Quarter: 2006Q4

REPORT INFORMATION
  Report Type: 
  Country: None (occurrence: None)
  Receive Date: 20061120
  Receipt Date: 20060801
  Transmission Date: 20070319
  Serious: Yes (Other)
  Sender: FDA-Public Use
  Company Number: PHBS2006JP11660

PATIENT

DRUGS (1)
  1. VOLTAREN [Suspect]
     Indication: ANALGESIC THERAPY
     Route: 054

REACTIONS (1)
  - SHOCK [None]
